FAERS Safety Report 7290353-1 (Version None)
Quarter: 2011Q1

REPORT INFORMATION
  Report Type: 
  Country: None (occurrence: None)
  Receive Date: 20110214
  Receipt Date: 20110207
  Transmission Date: 20110831
  Serious: Yes (Hospitalization, Other)
  Sender: FDA-Public Use
  Company Number: US-GENZYME-CAMP-1001066

PATIENT
  Sex: Female
  Weight: 59.27 kg

DRUGS (4)
  1. CAMPATH [Suspect]
     Dosage: 12 MG, QDX3
     Route: 042
     Dates: start: 20090817, end: 20090819
  2. METHYLPREDNISOLONE [Concomitant]
     Indication: MULTIPLE SCLEROSIS
     Dosage: 1.0 G, QDX3
     Route: 042
     Dates: start: 20080512, end: 20080514
  3. CAMPATH [Suspect]
     Indication: MULTIPLE SCLEROSIS
     Dosage: 12 MG, QDX5
     Route: 042
     Dates: start: 20080512, end: 20080516
  4. METHYLPREDNISOLONE [Concomitant]
     Dosage: 1.0 G, QDX3
     Route: 042
     Dates: start: 20090817, end: 20090819

REACTIONS (1)
  - ENDOCRINE OPHTHALMOPATHY [None]
